FAERS Safety Report 18986241 (Version 2)
Quarter: 2021Q1

REPORT INFORMATION
  Report Type: Report from Study
  Country: BR (occurrence: BR)
  Receive Date: 20210309
  Receipt Date: 20210320
  Transmission Date: 20210420
  Serious: Yes (Other)
  Sender: FDA-Public Use
  Company Number: NVSC2021BR018391

PATIENT
  Age: 50 Year
  Sex: Female
  Weight: 175 kg

DRUGS (3)
  1. COSENTYX [Suspect]
     Active Substance: SECUKINUMAB
     Dosage: UNK UNK, UNKNOWN
     Route: 065
     Dates: start: 20210110
  2. COSENTYX [Suspect]
     Active Substance: SECUKINUMAB
     Indication: ANKYLOSING SPONDYLITIS
     Dosage: 150 MG, EVERY 30 DAYS
     Route: 065
     Dates: start: 20201023
  3. COSENTYX [Suspect]
     Active Substance: SECUKINUMAB
     Dosage: 150 MG EVERY 30 DAYS
     Route: 065
     Dates: start: 202011, end: 20210111

REACTIONS (14)
  - Anxiety [Recovered/Resolved]
  - Malaise [Recovered/Resolved]
  - Hypoaesthesia [Unknown]
  - Diarrhoea [Recovered/Resolved]
  - Viral infection [Unknown]
  - Abdominal discomfort [Recovered/Resolved]
  - Nausea [Recovered/Resolved]
  - Swelling [Unknown]
  - Headache [Recovered/Resolved]
  - Vertigo [Unknown]
  - Arthralgia [Unknown]
  - Fatigue [Unknown]
  - Pain [Unknown]
  - Asthenia [Recovered/Resolved]

NARRATIVE: CASE EVENT DATE: 20210110
